FAERS Safety Report 12113877 (Version 1)
Quarter: 2016Q1

REPORT INFORMATION
  Report Type: Spontaneous
  Country: US (occurrence: None)
  Receive Date: 20160223
  Receipt Date: 20160223
  Transmission Date: 20160526
  Serious: Yes (Other)
  Sender: FDA-Public Use
  Company Number: None

PATIENT
  Age: 21 Year
  Sex: Female
  Weight: 81.65 kg

DRUGS (3)
  1. HEAD AND SHOULDERS [Suspect]
     Active Substance: PYRITHIONE ZINC
     Indication: DANDRUFF
  2. HEAD AND SHOULDERS [Suspect]
     Active Substance: PYRITHIONE ZINC
     Indication: SEBORRHOEA
  3. HEAD AND SHOULDERS [Suspect]
     Active Substance: PYRITHIONE ZINC
     Indication: STRESS

REACTIONS (4)
  - Skin burning sensation [None]
  - Pruritus [None]
  - Drug ineffective [None]
  - Throat tightness [None]

NARRATIVE: CASE EVENT DATE: 20160221
